FAERS Safety Report 8992147 (Version 11)
Quarter: 2014Q3

REPORT INFORMATION
  Report Type: Report from Study
  Country: CA (occurrence: CA)
  Receive Date: 20121231
  Receipt Date: 20140801
  Transmission Date: 20150326
  Serious: Yes (Hospitalization, Other)
  Sender: FDA-Public Use
  Company Number: CA-ROCHE-1172590

PATIENT
  Age: 64 Year
  Sex: Female
  Weight: 54.93 kg

DRUGS (12)
  1. OMALIZUMAB [Suspect]
     Active Substance: OMALIZUMAB
     Route: 058
     Dates: start: 20130327
  2. OMALIZUMAB [Suspect]
     Active Substance: OMALIZUMAB
     Indication: ASTHMA
     Route: 058
     Dates: start: 20051005
  3. OMALIZUMAB [Suspect]
     Active Substance: OMALIZUMAB
     Route: 058
     Dates: start: 20121221
  4. SYMBICORT [Concomitant]
     Active Substance: BUDESONIDE\FORMOTEROL FUMARATE DIHYDRATE
     Route: 065
  5. CLARITHROMYCIN. [Concomitant]
     Active Substance: CLARITHROMYCIN
     Route: 065
  6. OMALIZUMAB [Suspect]
     Active Substance: OMALIZUMAB
     Route: 058
     Dates: start: 20100303
  7. THEO-DUR [Concomitant]
     Active Substance: THEOPHYLLINE
     Route: 065
  8. OMALIZUMAB [Suspect]
     Active Substance: OMALIZUMAB
     Route: 058
     Dates: start: 20130508
  9. OMALIZUMAB [Suspect]
     Active Substance: OMALIZUMAB
     Route: 058
     Dates: start: 20131212
  10. FLOVENT [Concomitant]
     Active Substance: FLUTICASONE PROPIONATE
     Route: 065
  11. NASONEX [Concomitant]
     Active Substance: MOMETASONE FUROATE
     Route: 065
  12. OMALIZUMAB [Suspect]
     Active Substance: OMALIZUMAB
     Route: 058

REACTIONS (26)
  - Cough [Unknown]
  - Gout [Unknown]
  - Weight decreased [Unknown]
  - Gastrointestinal disorder [Unknown]
  - Sciatica [Recovering/Resolving]
  - Gait disturbance [Unknown]
  - Rhinorrhoea [Unknown]
  - Wheezing [Unknown]
  - Hypersensitivity [Not Recovered/Not Resolved]
  - Oropharyngeal pain [Unknown]
  - Sinusitis [Unknown]
  - Lung infection [Unknown]
  - Haemorrhage [Unknown]
  - Nasal polyps [Unknown]
  - Blood pressure increased [Unknown]
  - Pharyngitis [Unknown]
  - Back pain [Unknown]
  - Bronchitis [Unknown]
  - Dyspnoea exertional [Unknown]
  - Sinus congestion [Unknown]
  - Lower respiratory tract infection [Unknown]
  - Nasal congestion [Not Recovered/Not Resolved]
  - Abdominal neoplasm [Unknown]
  - Nasopharyngitis [Unknown]
  - Pain in extremity [Unknown]
  - Heart rate increased [Recovered/Resolved]

NARRATIVE: CASE EVENT DATE: 20070426
